FAERS Safety Report 6552936-3 (Version None)
Quarter: 2010Q1

REPORT INFORMATION
  Report Type: 
  Country: None (occurrence: None)
  Receive Date: 20100122
  Receipt Date: 20100114
  Transmission Date: 20100710
  Serious: Yes (Other)
  Sender: FDA-Public Use
  Company Number: CTI_01107_2010

PATIENT
  Age: 90 Year
  Sex: Female

DRUGS (5)
  1. SPECTRACEF [Suspect]
     Indication: RESPIRATORY TRACT INFECTION
     Dosage: COMPRIMIDOS RECUBIERTOS CON PELICULA, 20 COMPRIMIDOS (FILM-COATED TABLETS, 20 TABLETS), ORAL
     Route: 048
     Dates: start: 20090925, end: 20090928
  2. SPIRIVA [Concomitant]
  3. TIMOFTOL [Concomitant]
  4. XALATAN [Concomitant]
  5. ORFIDAL [Concomitant]

REACTIONS (2)
  - CONFUSIONAL STATE [None]
  - HALLUCINATION, VISUAL [None]
